FAERS Safety Report 7367157-4 (Version None)
Quarter: 2011Q1

REPORT INFORMATION
  Report Type: 
  Country: None (occurrence: None)
  Receive Date: 20110322
  Receipt Date: 20110310
  Transmission Date: 20110831
  Serious: Yes (Other)
  Sender: FDA-Public Use
  Company Number: US-JNJFOC-20110305432

PATIENT
  Sex: Female
  Weight: 50.8 kg

DRUGS (1)
  1. REMICADE [Suspect]
     Indication: CROHN'S DISEASE
     Route: 042

REACTIONS (4)
  - PRURITUS GENERALISED [None]
  - SQUAMOUS CELL CARCINOMA OF SKIN [None]
  - RASH [None]
  - SKIN ULCER [None]
